FAERS Safety Report 4289267-0 (Version None)
Quarter: 2004Q1

REPORT INFORMATION
  Report Type: 
  Country: None (occurrence: None)
  Receive Date: 20040203
  Receipt Date: 20000409
  Transmission Date: 20041129
  Serious: Yes (Other)
  Sender: FDA-Public Use
  Company Number: 2000-068

PATIENT
  Age: 23 Year
  Sex: Female

DRUGS (1)
  1. DORYX [Suspect]
     Indication: VIRAL INFECTION
     Dosage: 100 MG 1 DOSE ORAL
     Route: 048
     Dates: start: 20000407, end: 20000407

REACTIONS (1)
  - NAUSEA [None]
